FAERS Safety Report 7207571-0 (Version None)
Quarter: 2011Q1

REPORT INFORMATION
  Report Type: 
  Country: None (occurrence: None)
  Receive Date: 20110103
  Receipt Date: 20101229
  Transmission Date: 20110831
  Serious: No
  Sender: FDA-Public Use
  Company Number: US-CEPHALON-2010006630

PATIENT
  Sex: Male

DRUGS (1)
  1. FENTORA [Suspect]
     Indication: PANCREATITIS CHRONIC
     Route: 002

REACTIONS (2)
  - DRUG INEFFECTIVE FOR UNAPPROVED INDICATION [None]
  - POOR QUALITY DRUG ADMINISTERED [None]
